FAERS Safety Report 20636115 (Version 1)
Quarter: 2022Q1

REPORT INFORMATION
  Report Type: Spontaneous
  Country: US (occurrence: US)
  Receive Date: 20220325
  Receipt Date: 20220325
  Transmission Date: 20220423
  Serious: Yes (Other)
  Sender: FDA-Public Use
  Company Number: US-MLMSERVICE-20220314-3430276-1

PATIENT
  Age: 5 Decade
  Sex: Female
  Weight: 45.5 kg

DRUGS (2)
  1. TOPIRAMATE [Suspect]
     Active Substance: TOPIRAMATE
     Indication: Migraine
     Route: 048
     Dates: start: 2018
  2. TOPIRAMATE [Suspect]
     Active Substance: TOPIRAMATE
     Route: 048
     Dates: start: 2015

REACTIONS (9)
  - Nephrolithiasis [Unknown]
  - Renal tubular acidosis [Unknown]
  - Renal tubular dysfunction [Unknown]
  - Blood bicarbonate decreased [Recovered/Resolved]
  - Hyperphosphaturia [Unknown]
  - Urine oxalate increased [Unknown]
  - Amino acid level increased [Not Recovered/Not Resolved]
  - Hyperuricosuria [Unknown]
  - Drug ineffective [Unknown]
